FAERS Safety Report 21990541 (Version 1)
Quarter: 2023Q1

REPORT INFORMATION
  Report Type: Spontaneous
  Country: US (occurrence: None)
  Receive Date: 20230213
  Receipt Date: 20230213
  Transmission Date: 20230417
  Serious: Yes (Other)
  Sender: FDA-Public Use
  Company Number: None

PATIENT
  Age: 35 Year
  Sex: Male
  Weight: 78.75 kg

DRUGS (1)
  1. FINASTERIDE [Suspect]
     Active Substance: FINASTERIDE
     Indication: Androgenetic alopecia
     Dates: start: 20200901, end: 20200920

REACTIONS (4)
  - Semen viscosity decreased [None]
  - Testicular pain [None]
  - Loss of libido [None]
  - Decreased interest [None]

NARRATIVE: CASE EVENT DATE: 20201001
